FAERS Safety Report 8083730-2 (Version None)
Quarter: 2012Q1

REPORT INFORMATION
  Report Type: 
  Country: None (occurrence: None)
  Receive Date: 20120127
  Receipt Date: 20110121
  Transmission Date: 20120608
  Serious: No
  Sender: FDA-Public Use
  Company Number: US-ABBOTT-11P-163-0700142-00

PATIENT
  Sex: Female
  Weight: 135.29 kg

DRUGS (6)
  1. TRAZODONE HCL [Concomitant]
     Indication: DEPRESSION
  2. HYDROXINE [Concomitant]
     Indication: PSORIASIS
  3. DIAZEPAM [Concomitant]
     Indication: ANXIETY
  4. HUMIRA [Suspect]
     Indication: PSORIATIC ARTHROPATHY
     Dates: start: 20100322, end: 20110101
  5. HUMIRA [Suspect]
     Dates: start: 20110101
  6. GABAPENTIN [Concomitant]
     Indication: ARTHRALGIA

REACTIONS (7)
  - PAIN IN EXTREMITY [None]
  - UPPER RESPIRATORY TRACT CONGESTION [None]
  - ASTHENIA [None]
  - RASH [None]
  - INAPPROPRIATE SCHEDULE OF DRUG ADMINISTRATION [None]
  - ARTHRALGIA [None]
  - UPPER RESPIRATORY TRACT INFECTION [None]
